FAERS Safety Report 16771706 (Version 1)
Quarter: 2019Q4

REPORT INFORMATION
  Report Type: Spontaneous
  Country: US (occurrence: US)
  Receive Date: 20190903
  Receipt Date: 20190903
  Transmission Date: 20200122
  Serious: Yes (Life-Threatening, Hospitalization, Disabling)
  Sender: FDA-Public Use
  Company Number: None

PATIENT
  Age: 39 Year
  Sex: Female
  Weight: 76.5 kg

DRUGS (9)
  1. METHADONE [Concomitant]
     Active Substance: METHADONE HYDROCHLORIDE
  2. XANAX [Concomitant]
     Active Substance: ALPRAZOLAM
  3. NEURONTIN [Concomitant]
     Active Substance: GABAPENTIN
  4. DULOXETINE. [Concomitant]
     Active Substance: DULOXETINE
  5. ACCUTANE [Suspect]
     Active Substance: ISOTRETINOIN
     Indication: ACNE CYSTIC
     Dosage: ?          QUANTITY:1 TABLET(S);?
     Route: 048
  6. GABAPENTIN. [Concomitant]
     Active Substance: GABAPENTIN
  7. METHOCARBAMOL. [Concomitant]
     Active Substance: METHOCARBAMOL
  8. FAMOTIDINE. [Concomitant]
     Active Substance: FAMOTIDINE
  9. ABILIFY [Concomitant]
     Active Substance: ARIPIPRAZOLE

REACTIONS (14)
  - Depression [None]
  - Klebsiella infection [None]
  - Intervertebral disc degeneration [None]
  - Mastitis [None]
  - Hepatic enzyme increased [None]
  - Gallbladder disorder [None]
  - Hiatus hernia [None]
  - Generalised anxiety disorder [None]
  - Madarosis [None]
  - Scoliosis [None]
  - Disability [None]
  - Gait inability [None]
  - Impaired healing [None]
  - Amenorrhoea [None]

NARRATIVE: CASE EVENT DATE: 20050701
